FAERS Safety Report 13066838 (Version 1)
Quarter: 2016Q4

REPORT INFORMATION
  Report Type: Report from Study
  Country: None (occurrence: DE)
  Receive Date: 20161227
  Receipt Date: 20161227
  Transmission Date: 20170207
  Serious: Yes (Death)
  Sender: FDA-Public Use
  Company Number: DE-ABBVIE-16P-062-1820627-00

PATIENT
  Age: 75 Year
  Sex: Male

DRUGS (1)
  1. DUODOPA [Suspect]
     Active Substance: CARBIDOPA\LEVODOPA
     Indication: PARKINSON^S DISEASE
     Dosage: MD: 4,0ML; CRD: 3,2ML/H; CRN: 2,1ML/H; ED: 0,6ML
     Route: 050
     Dates: start: 20160229

REACTIONS (1)
  - Death [Fatal]

NARRATIVE: CASE EVENT DATE: 20161211
